FAERS Safety Report 10713340 (Version 5)
Quarter: 2015Q1

REPORT INFORMATION
  Report Type: Report from Study
  Country: DE (occurrence: DE)
  Receive Date: 20150115
  Receipt Date: 20150304
  Transmission Date: 20150721
  Serious: Yes (Death, Other)
  Sender: FDA-Public Use
  Company Number: DE-ABBVIE-15P-062-1330211-00

PATIENT
  Age: 77 Year
  Sex: Female
  Weight: 37 kg

DRUGS (1)
  1. DUODOPA [Suspect]
     Active Substance: CARBIDOPA\LEVODOPA
     Indication: PARKINSON^S DISEASE
     Dosage: MD 3.5 ML CRD 4.0 ML/H ED 2.5 ML
     Route: 050
     Dates: start: 20141001

REACTIONS (5)
  - Weight decreased [Not Recovered/Not Resolved]
  - Myocardial infarction [Fatal]
  - Circulatory collapse [Fatal]
  - Dyspepsia [Not Recovered/Not Resolved]
  - General physical health deterioration [Fatal]

NARRATIVE: CASE EVENT DATE: 20150118
